FAERS Safety Report 10744192 (Version 1)
Quarter: 2015Q1

REPORT INFORMATION
  Report Type: Spontaneous
  Country: US (occurrence: None)
  Receive Date: 20150126
  Receipt Date: 20150126
  Transmission Date: 20150721
  Serious: No
  Sender: FDA-Public Use
  Company Number: None

PATIENT
  Age: 66 Year
  Sex: Female

DRUGS (1)
  1. PLEGRIDY [Suspect]
     Active Substance: PEGINTERFERON BETA-1A
     Indication: MULTIPLE SCLEROSIS
     Route: 058
     Dates: start: 20150114, end: 20150114

REACTIONS (6)
  - Depressed mood [None]
  - Injection site erythema [None]
  - Pruritus [None]
  - Injection site pain [None]
  - Pain [None]
  - Mood altered [None]

NARRATIVE: CASE EVENT DATE: 20150114
